FAERS Safety Report 17477507 (Version 3)
Quarter: 2020Q4

REPORT INFORMATION
  Report Type: Report from Study
  Country: None (occurrence: US)
  Receive Date: 20200229
  Receipt Date: 20201230
  Transmission Date: 20210113
  Serious: Yes (Hospitalization, Other)
  Sender: FDA-Public Use
  Company Number: US-ABBVIE-20K-163-3293931-00

PATIENT
  Age: 72 Year
  Sex: Female
  Weight: 63.56 kg

DRUGS (8)
  1. PREDNISONE. [Suspect]
     Active Substance: PREDNISONE
     Indication: PRODUCT USED FOR UNKNOWN INDICATION
     Route: 065
  2. EXFORGE [Concomitant]
     Active Substance: AMLODIPINE BESYLATE\VALSARTAN
     Indication: HYPERTENSION
  3. HUMIRA [Suspect]
     Active Substance: ADALIMUMAB
     Indication: CROHN^S DISEASE
     Route: 058
  4. PROZAC [Concomitant]
     Active Substance: FLUOXETINE HYDROCHLORIDE
     Indication: DEPRESSION
  5. HUMIRA [Suspect]
     Active Substance: ADALIMUMAB
     Indication: RHEUMATOID ARTHRITIS
  6. VALIUM [Concomitant]
     Active Substance: DIAZEPAM
     Indication: SLEEP DISORDER
  7. POTASSIUM [Concomitant]
     Active Substance: POTASSIUM
     Indication: MINERAL SUPPLEMENTATION
  8. CALCIUM [Concomitant]
     Active Substance: CALCIUM
     Indication: MINERAL SUPPLEMENTATION

REACTIONS (25)
  - Rectal prolapse [Unknown]
  - Weight decreased [Unknown]
  - Ulcer [Unknown]
  - Injection site pain [Unknown]
  - Neck surgery [Unknown]
  - Constipation [Not Recovered/Not Resolved]
  - Ultrasound kidney abnormal [Unknown]
  - Asthenia [Unknown]
  - Spinal fusion surgery [Unknown]
  - Heart rate irregular [Unknown]
  - Benign anorectal neoplasm [Unknown]
  - Injection site reaction [Unknown]
  - Pain [Not Recovered/Not Resolved]
  - Shoulder operation [Not Recovered/Not Resolved]
  - Malignant melanoma [Unknown]
  - Unevaluable event [Unknown]
  - Intervertebral disc operation [Unknown]
  - Erythema [Unknown]
  - Pneumonia [Unknown]
  - Vertebral osteophyte [Unknown]
  - Gastric disorder [Unknown]
  - Stent placement [Unknown]
  - Mobility decreased [Unknown]
  - Fluid retention [Unknown]
  - Abdominal distension [Unknown]

NARRATIVE: CASE EVENT DATE: 2003
